FAERS Safety Report 4869556-9 (Version None)
Quarter: 2005Q4

REPORT INFORMATION
  Report Type: 
  Country: None (occurrence: None)
  Receive Date: 20051223
  Receipt Date: 20021015
  Transmission Date: 20060501
  Serious: Yes (Death, Life-Threatening, Hospitalization)
  Sender: FDA-Public Use
  Company Number: HQ9590619DEC2001

PATIENT
  Age: 57 Year
  Sex: Male

DRUGS (13)
  1. GEMTUZUMAB OZOGAMICIN(GEMTUZUMAB OZOGAMICIN, INJECTION) [Suspect]
     Indication: ACUTE MYELOID LEUKAEMIA
     Dosage: 11.4 MG ONE TIME PER ONE DOSE INTRAVENOUS; SEE IMAGE
     Route: 042
     Dates: start: 20010830, end: 20010830
  2. GEMTUZUMAB OZOGAMICIN(GEMTUZUMAB OZOGAMICIN, INJECTION) [Suspect]
     Indication: ACUTE MYELOID LEUKAEMIA
     Dosage: 11.4 MG ONE TIME PER ONE DOSE INTRAVENOUS; SEE IMAGE
     Route: 042
     Dates: start: 20010906, end: 20010906
  3. CYTARABINE [Suspect]
     Indication: ACUTE MYELOID LEUKAEMIA
     Dosage: 190 MG TOTAL DAILY DOSE INTRAVENOUS
     Route: 042
     Dates: start: 20010830, end: 20010906
  4. PHENERGAN (PROMETHAZINE HYDROCHLORIDE) [Concomitant]
  5. HYDROCORTISONE [Concomitant]
  6. PREDNISONE [Concomitant]
  7. ATENOLOL [Concomitant]
  8. FLUCONAZOLE [Concomitant]
  9. FOLIC ACID [Concomitant]
  10. MATERN A (MULTIVITAMIN) [Concomitant]
  11. ARISTOCORT (TRIAMCINOLONE ACETONIDE) [Concomitant]
  12. OMEPRAZOLE [Concomitant]
  13. GANCICLOVIR SODIUM [Concomitant]

REACTIONS (12)
  - ALANINE AMINOTRANSFERASE INCREASED [None]
  - ANXIETY [None]
  - ASPARTATE AMINOTRANSFERASE INCREASED [None]
  - BLOOD ALKALINE PHOSPHATASE INCREASED [None]
  - BLOOD LACTATE DEHYDROGENASE INCREASED [None]
  - GAMMA-GLUTAMYLTRANSFERASE INCREASED [None]
  - HAEMATOCRIT DECREASED [None]
  - MOOD ALTERED [None]
  - PLATELET COUNT DECREASED [None]
  - RED BLOOD CELL COUNT DECREASED [None]
  - TOXOPLASMOSIS [None]
  - WHITE BLOOD CELL COUNT DECREASED [None]
